FAERS Safety Report 21693649 (Version 1)
Quarter: 2022Q4

REPORT INFORMATION
  Report Type: Other
  Country: US (occurrence: None)
  Receive Date: 20221207
  Receipt Date: 20221207
  Transmission Date: 20230113
  Serious: No
  Sender: FDA-Public Use
  Company Number: US-ROCHE-3233153

PATIENT
  Age: 59 Year
  Sex: Female
  Weight: 96.248 kg

DRUGS (20)
  1. OCREVUS [Suspect]
     Active Substance: OCRELIZUMAB
     Indication: Relapsing multiple sclerosis
     Dosage: ON DAY 1 AND DAY 15 THEN 600 MG EVERY 6 MONTHS
     Route: 042
     Dates: start: 202210
  2. BACLOFEN [Concomitant]
     Active Substance: BACLOFEN
  3. AMPYRA [Concomitant]
     Active Substance: DALFAMPRIDINE
  4. TRILEPTAL [Concomitant]
     Active Substance: OXCARBAZEPINE
  5. MODAFINIL [Concomitant]
     Active Substance: MODAFINIL
  6. ZANAFLEX [Concomitant]
     Active Substance: TIZANIDINE HYDROCHLORIDE
  7. MELOXICAM [Concomitant]
     Active Substance: MELOXICAM
  8. AZOR (UNITED STATES) [Concomitant]
  9. ATENOLOL [Concomitant]
     Active Substance: ATENOLOL
  10. ESTRADIOL [Concomitant]
     Active Substance: ESTRADIOL
  11. ROSUVASTATIN [Concomitant]
     Active Substance: ROSUVASTATIN
  12. TRULICITY [Concomitant]
     Active Substance: DULAGLUTIDE
  13. VITAMINS [Concomitant]
     Active Substance: VITAMINS
  14. ERGOCALCIFEROL [Concomitant]
     Active Substance: ERGOCALCIFEROL
  15. ALLEGRA [Concomitant]
     Active Substance: FEXOFENADINE HYDROCHLORIDE
  16. TYSABRI [Concomitant]
     Active Substance: NATALIZUMAB
  17. PAXLOVID [Concomitant]
     Active Substance: NIRMATRELVIR\RITONAVIR
  18. TECFIDERA [Concomitant]
     Active Substance: DIMETHYL FUMARATE
  19. BETASERON [Concomitant]
     Active Substance: INTERFERON BETA-1B
  20. AVONEX [Concomitant]
     Active Substance: INTERFERON BETA-1A

REACTIONS (1)
  - COVID-19 [Recovered/Resolved]

NARRATIVE: CASE EVENT DATE: 20221122
